FAERS Safety Report 14476203 (Version 4)
Quarter: 2018Q2

REPORT INFORMATION
  Report Type: Spontaneous
  Country: US (occurrence: US)
  Receive Date: 20180201
  Receipt Date: 20180605
  Transmission Date: 20180711
  Serious: Yes (Other)
  Sender: FDA-Public Use
  Company Number: US-SA-2017SA245415

PATIENT
  Age: 59 Year
  Sex: Female
  Weight: 88.44 kg

DRUGS (6)
  1. PRALUENT [Suspect]
     Active Substance: ALIROCUMAB
     Indication: TYPE V HYPERLIPIDAEMIA
     Dosage: 150 MG,QOW
     Route: 058
     Dates: start: 201708
  2. ALIROCUMAB PREFILLED PEN [Suspect]
     Active Substance: ALIROCUMAB
     Indication: BLOOD CHOLESTEROL INCREASED
     Dosage: 150 UNK, QOW
     Dates: start: 201708
  3. PRALUENT [Suspect]
     Active Substance: ALIROCUMAB
     Indication: BLOOD CHOLESTEROL INCREASED
     Dosage: 150 MG,QOW
     Route: 058
     Dates: start: 201708
  4. ALIROCUMAB PREFILLED PEN [Suspect]
     Active Substance: ALIROCUMAB
     Indication: TYPE V HYPERLIPIDAEMIA
     Dosage: 150 UNK, QOW
     Dates: start: 201708
  5. PRALUENT [Suspect]
     Active Substance: ALIROCUMAB
     Dosage: 150 UNK
     Route: 058
  6. ALIROCUMAB PREFILLED PEN [Suspect]
     Active Substance: ALIROCUMAB
     Dosage: 150 UNK
     Dates: start: 201708

REACTIONS (7)
  - Bronchitis [Recovering/Resolving]
  - Rhinorrhoea [Unknown]
  - Injection site haemorrhage [Unknown]
  - Malaise [Recovering/Resolving]
  - Injury associated with device [Unknown]
  - Knee arthroplasty [Unknown]
  - Device use issue [Unknown]

NARRATIVE: CASE EVENT DATE: 201802
